FAERS Safety Report 15573291 (Version 2)
Quarter: 2018Q4

REPORT INFORMATION
  Report Type: Spontaneous
  Country: US (occurrence: US)
  Receive Date: 20181101
  Receipt Date: 20181102
  Transmission Date: 20190205
  Serious: Yes (Hospitalization, Other)
  Sender: FDA-Public Use
  Company Number: US-SHIRE-US201841739

PATIENT
  Age: 37 Year
  Sex: Male
  Weight: 157 kg

DRUGS (12)
  1. FEIBA NF [Suspect]
     Active Substance: ANTI-INHIBITOR COAGULANT COMPLEX
     Dosage: 6500 U, UNK
     Route: 065
     Dates: start: 20171007
  2. FEIBA NF [Suspect]
     Active Substance: ANTI-INHIBITOR COAGULANT COMPLEX
     Dosage: 13100 U, 2X/DAY:BID
     Route: 065
     Dates: start: 20170925, end: 20171006
  3. LORAZEPAM. [Concomitant]
     Active Substance: LORAZEPAM
     Indication: PRODUCT USED FOR UNKNOWN INDICATION
  4. FEIBA NF [Suspect]
     Active Substance: ANTI-INHIBITOR COAGULANT COMPLEX
     Indication: PRODUCT USED FOR UNKNOWN INDICATION
     Dosage: 13100 U, UNK
     Route: 065
     Dates: start: 20170912, end: 20170917
  5. FAMOTIDINE. [Concomitant]
     Active Substance: FAMOTIDINE
     Indication: PRODUCT USED FOR UNKNOWN INDICATION
  6. PROMETHAZINE [Concomitant]
     Active Substance: PROMETHAZINE\PROMETHAZINE HYDROCHLORIDE
     Indication: PRODUCT USED FOR UNKNOWN INDICATION
  7. NOVOSEVEN [Concomitant]
     Active Substance: COAGULATION FACTOR VIIA RECOMBINANT HUMAN
     Indication: HAEMORRHAGE
  8. KCL [Concomitant]
     Active Substance: POTASSIUM CHLORIDE
     Indication: PRODUCT USED FOR UNKNOWN INDICATION
  9. OXYCODONE [Concomitant]
     Active Substance: OXYCODONE
     Indication: PRODUCT USED FOR UNKNOWN INDICATION
  10. AMPICILLIN [Concomitant]
     Active Substance: AMPICILLIN
     Indication: PRODUCT USED FOR UNKNOWN INDICATION
  11. FEIBA NF [Suspect]
     Active Substance: ANTI-INHIBITOR COAGULANT COMPLEX
     Dosage: 13100 U, UNK
     Route: 065
     Dates: start: 20170924
  12. METHADONE [Concomitant]
     Active Substance: METHADONE HYDROCHLORIDE
     Indication: PRODUCT USED FOR UNKNOWN INDICATION

REACTIONS (11)
  - Post procedural haemorrhage [Unknown]
  - Dental caries [Unknown]
  - Staphylococcal bacteraemia [Unknown]
  - Vomiting [Unknown]
  - Aortic thrombosis [Recovered/Resolved]
  - Diarrhoea haemorrhagic [Unknown]
  - Bladder disorder [Recovered/Resolved]
  - Disseminated intravascular coagulation [Unknown]
  - Abdominal pain [Unknown]
  - Colitis ischaemic [Recovered/Resolved]
  - Renal infarct [Recovered/Resolved]

NARRATIVE: CASE EVENT DATE: 20170919
